FAERS Safety Report 7762868-0 (Version None)
Quarter: 2011Q3

REPORT INFORMATION
  Report Type: 
  Country: None (occurrence: None)
  Receive Date: 20110920
  Receipt Date: 20110912
  Transmission Date: 20111222
  Serious: Yes (Hospitalization)
  Sender: FDA-Public Use
  Company Number: JP-ASTRAZENECA-2011SE55695

PATIENT
  Age: 53 Year
  Sex: Female

DRUGS (5)
  1. RISPERDAL [Concomitant]
     Route: 042
     Dates: end: 20110826
  2. SEROQUEL [Suspect]
     Route: 048
     Dates: start: 20110907, end: 20110909
  3. CRESTOR [Concomitant]
     Route: 048
  4. SEROQUEL [Suspect]
     Indication: SCHIZOPHRENIA
     Route: 048
     Dates: start: 20110817
  5. SEROQUEL [Suspect]
     Route: 048
     Dates: start: 20110822

REACTIONS (1)
  - PULMONARY FIBROSIS [None]
